FAERS Safety Report 6181071-1 (Version None)
Quarter: 2009Q2

REPORT INFORMATION
  Report Type: 
  Country: None (occurrence: None)
  Receive Date: 20090504
  Receipt Date: 20090504
  Transmission Date: 20091009
  Serious: Yes (Other)
  Sender: FDA-Public Use
  Company Number: None

PATIENT
  Age: 64 Year
  Sex: Male
  Weight: 91.6266 kg

DRUGS (7)
  1. NIASPAN [Suspect]
     Indication: HIGH DENSITY LIPOPROTEIN DECREASED
     Dosage: ONE TABLET OF 500 MGS. HS ONE HS PO
     Route: 048
     Dates: start: 20090117, end: 20090430
  2. LIPITOR [Concomitant]
  3. SINGULAIR [Concomitant]
  4. TRIAMTERENE [Concomitant]
  5. CENTRIM SILVER [Concomitant]
  6. VITAMIN D [Concomitant]
  7. FISH OIL [Concomitant]

REACTIONS (5)
  - BURNING SENSATION [None]
  - DYSPEPSIA [None]
  - FLUSHING [None]
  - HAIR DISORDER [None]
  - PAIN [None]
